FAERS Safety Report 4665875-X (Version None)
Quarter: 2005Q2

REPORT INFORMATION
  Report Type: 
  Country: None (occurrence: None)
  Receive Date: 20050517
  Receipt Date: 20050228
  Transmission Date: 20051028
  Serious: No
  Sender: FDA-Public Use
  Company Number: S05-USA-01112-01

PATIENT
  Age: 83 Year
  Sex: Female

DRUGS (6)
  1. NAMENDA [Suspect]
     Indication: PARKINSON'S DISEASE
     Dosage: 5 MG QD PO
     Route: 048
     Dates: start: 20050201
  2. SINEMET [Concomitant]
  3. ARICEPT [Concomitant]
  4. SEROQUEL [Concomitant]
  5. NORVASC [Concomitant]
  6. DETROL [Concomitant]

REACTIONS (1)
  - FATIGUE [None]
